FAERS Safety Report 9233864 (Version 1)
Quarter: 2013Q2

REPORT INFORMATION
  Report Type: Spontaneous
  Country: FR (occurrence: FR)
  Receive Date: 20130416
  Receipt Date: 20130416
  Transmission Date: 20140414
  Serious: Yes (Hospitalization)
  Sender: FDA-Public Use
  Company Number: FR-PFIZER INC-2013114066

PATIENT
  Age: 69 Year
  Sex: Female

DRUGS (18)
  1. AMLOR [Suspect]
     Dosage: UNK
     Route: 048
     Dates: start: 20130117, end: 20130214
  2. CIPROFLOXACIN HCL [Suspect]
     Indication: INTERVERTEBRAL DISCITIS
     Dosage: UNK
     Route: 048
     Dates: start: 20130123, end: 20130214
  3. COLCHICINE [Suspect]
     Indication: GOUT
     Dosage: UNK
     Route: 048
     Dates: start: 20130114, end: 20130214
  4. ALLOPURINOL [Suspect]
     Dosage: UNK
     Route: 048
     Dates: end: 20130214
  5. TARDYFERON [Concomitant]
  6. TAHOR [Concomitant]
  7. COUMADINE [Concomitant]
  8. INEXIUM [Concomitant]
  9. LYRICA [Concomitant]
  10. EFFEXOR [Concomitant]
  11. LASILIX [Concomitant]
  12. PROCORALAN [Concomitant]
     Dosage: UNK
     Dates: start: 20121225
  13. PRIMPERAN [Concomitant]
     Dosage: UNK
     Dates: start: 20121225
  14. LOVENOX [Concomitant]
     Dosage: UNK
     Dates: start: 20121225
  15. OXYCONTIN [Concomitant]
     Dosage: UNK
     Dates: start: 20121225
  16. PIPERACILLIN [Concomitant]
     Dosage: UNK
     Dates: start: 20121227
  17. AMIKLIN [Concomitant]
     Dosage: UNK
     Dates: start: 20121227, end: 20130123
  18. LOXEN [Concomitant]
     Dosage: UNK
     Dates: start: 20130114, end: 20130117

REACTIONS (3)
  - Dermatitis exfoliative [Recovered/Resolved]
  - Renal failure acute [Recovered/Resolved]
  - Skin exfoliation [Recovered/Resolved]
